FAERS Safety Report 7879826-8 (Version None)
Quarter: 2011Q4

REPORT INFORMATION
  Report Type: 
  Country: None (occurrence: None)
  Receive Date: 20111101
  Receipt Date: 20111021
  Transmission Date: 20120403
  Serious: Yes (Other)
  Sender: FDA-Public Use
  Company Number: AU-BAYER-2011-102460

PATIENT
  Age: 42 Year
  Sex: Female

DRUGS (1)
  1. CLOTRIMAZOLE [Suspect]
     Dosage: UNK
     Route: 067
     Dates: start: 20111019

REACTIONS (2)
  - VULVOVAGINAL BURNING SENSATION [None]
  - VAGINAL HAEMORRHAGE [None]
